FAERS Safety Report 7064600-5 (Version None)
Quarter: 2010Q4

REPORT INFORMATION
  Report Type: 
  Country: None (occurrence: None)
  Receive Date: 20101022
  Receipt Date: 20101022
  Transmission Date: 20110411
  Serious: Yes (Other)
  Sender: FDA-Public Use
  Company Number: None

PATIENT
  Sex: Male
  Weight: 106.5953 kg

DRUGS (1)
  1. METFORMIN HCL [Suspect]
     Indication: TYPE 2 DIABETES MELLITUS
     Dosage: 500MG 2X DAY
     Dates: start: 20100210, end: 20100310

REACTIONS (2)
  - ABDOMINAL DISCOMFORT [None]
  - DIARRHOEA [None]
